FAERS Safety Report 5289405-7 (Version None)
Quarter: 2007Q2

REPORT INFORMATION
  Report Type: 
  Country: None (occurrence: None)
  Receive Date: 20070406
  Receipt Date: 20070402
  Transmission Date: 20071010
  Serious: Yes (Life-Threatening, Hospitalization)
  Sender: FDA-Public Use
  Company Number: PHNU2007DE01391

PATIENT
  Age: 66 Year
  Sex: Male
  Weight: 86 kg

DRUGS (8)
  1. HYDROCHLOROTHIAZIDE [Concomitant]
  2. CHOLESTEROL- AND TRIGLYCERIDE REDUCERS [Concomitant]
  3. INSULIN [Concomitant]
  4. ACE INHIBITOR NOS [Concomitant]
     Dates: end: 20070207
  5. EXFORGE [Suspect]
     Indication: HYPERTENSION
     Dosage: 1 DF, QD
     Route: 048
     Dates: start: 20070208, end: 20070228
  6. BISOHEXAL [Concomitant]
     Indication: HYPERTENSION
     Dosage: 10 MG/D
     Route: 048
     Dates: start: 20040101
  7. MOXONIDINE [Concomitant]
     Dosage: 0.6 MG/D
     Route: 048
  8. ACETYLSALICYLIC ACID SRT [Concomitant]
     Indication: HYPERTENSION
     Dosage: 100 MG/D
     Route: 048
     Dates: start: 20040101

REACTIONS (3)
  - ACUTE MYOCARDIAL INFARCTION [None]
  - CORONARY ANGIOPLASTY [None]
  - STENT PLACEMENT [None]
